FAERS Safety Report 11569136 (Version 1)
Quarter: 2015Q3

REPORT INFORMATION
  Report Type: Spontaneous
  Country: US (occurrence: None)
  Receive Date: 20150928
  Receipt Date: 20150928
  Transmission Date: 20151125
  Serious: No
  Sender: FDA-Public Use
  Company Number: None

PATIENT
  Age: 59 Year
  Sex: Female

DRUGS (1)
  1. XELJANZ [Suspect]
     Active Substance: TOFACITINIB CITRATE
     Indication: RHEUMATOID ARTHRITIS
     Route: 048
     Dates: start: 20150804, end: 20150910

REACTIONS (6)
  - Neck pain [None]
  - Headache [None]
  - Abdominal pain [None]
  - Diarrhoea [None]
  - Spinal pain [None]
  - Mental disorder [None]

NARRATIVE: CASE EVENT DATE: 20150817
